FAERS Safety Report 19745096 (Version 1)
Quarter: 2021Q3

REPORT INFORMATION
  Report Type: Spontaneous
  Country: US (occurrence: US)
  Receive Date: 20210824
  Receipt Date: 20210824
  Transmission Date: 20211014
  Serious: Yes (Disabling, Other)
  Sender: FDA-Public Use
  Company Number: None

PATIENT
  Age: 33 Year
  Sex: Female
  Weight: 99.9 kg

DRUGS (8)
  1. MIRENA [Concomitant]
     Active Substance: LEVONORGESTREL
  2. CALCIUM/MAGNESIUM SUPPLEMENT [Concomitant]
  3. IBUPROFEN. [Concomitant]
     Active Substance: IBUPROFEN
  4. ZIOXT PATCH [Concomitant]
  5. HYDROXYZINE HCL [Suspect]
     Active Substance: HYDROXYZINE HYDROCHLORIDE
     Indication: ANXIETY
     Dosage: ?          QUANTITY:5 TABLET(S);?
     Route: 048
     Dates: start: 20210722, end: 20210808
  6. ACETAMINOPHEN. [Concomitant]
     Active Substance: ACETAMINOPHEN
  7. METHYLPHENIDATE. [Concomitant]
     Active Substance: METHYLPHENIDATE
  8. OMEPRAZOLE. [Concomitant]
     Active Substance: OMEPRAZOLE

REACTIONS (11)
  - Chest pain [None]
  - Myocardial infarction [None]
  - Cognitive disorder [None]
  - Confusional state [None]
  - Back pain [None]
  - Neck pain [None]
  - Dizziness [None]
  - Movement disorder [None]
  - Fall [None]
  - Malaise [None]
  - Syncope [None]

NARRATIVE: CASE EVENT DATE: 20210808
